FAERS Safety Report 15362156 (Version 1)
Quarter: 2018Q3

REPORT INFORMATION
  Report Type: Spontaneous
  Country: US (occurrence: US)
  Receive Date: 20180831
  Receipt Date: 20180831
  Transmission Date: 20181010
  Serious: No
  Sender: FDA-Public Use
  Company Number: None

PATIENT
  Age: 50 Year
  Sex: Female

DRUGS (1)
  1. COSENTYX [Suspect]
     Active Substance: SECUKINUMAB
     Dates: start: 201802

REACTIONS (3)
  - Paranasal sinus discomfort [None]
  - Respiratory tract infection [None]
  - Sinus pain [None]

NARRATIVE: CASE EVENT DATE: 20180831
